FAERS Safety Report 24136628 (Version 2)
Quarter: 2024Q3

REPORT INFORMATION
  Report Type: Spontaneous
  Country: GB (occurrence: GB)
  Receive Date: 20240725
  Receipt Date: 20240802
  Transmission Date: 20241017
  Serious: Yes (Hospitalization, Other)
  Sender: MYLAN
  Company Number: GB-MYLANLABS-2024M1068416

PATIENT
  Sex: Male

DRUGS (1)
  1. CLOZARIL [Suspect]
     Active Substance: CLOZAPINE
     Indication: Schizophrenia
     Dosage: UNK
     Route: 048
     Dates: start: 20020202

REACTIONS (6)
  - Epilepsy [Unknown]
  - Malaise [Unknown]
  - Aggression [Unknown]
  - Unresponsive to stimuli [Unknown]
  - Delirium [Unknown]
  - Somnolence [Unknown]
